FAERS Safety Report 11774183 (Version 3)
Quarter: 2015Q4

REPORT INFORMATION
  Report Type: Spontaneous
  Country: FR (occurrence: FR)
  Receive Date: 20151124
  Receipt Date: 20151211
  Transmission Date: 20160304
  Serious: Yes (Hospitalization)
  Sender: FDA-Public Use
  Company Number: FR-PFIZER INC-2015397411

PATIENT
  Age: 45 Year

DRUGS (12)
  1. DIPRIVAN [Suspect]
     Active Substance: PROPOFOL
     Indication: GENERAL ANAESTHESIA
     Dosage: UNK
     Route: 042
     Dates: start: 20151020, end: 20151020
  2. SUFENTA [Suspect]
     Active Substance: SUFENTANIL CITRATE
     Indication: PERIOPERATIVE ANALGESIA
     Dosage: UNK
     Route: 042
     Dates: start: 20151020, end: 20151020
  3. SEVORANE [Suspect]
     Active Substance: SEVOFLURANE
     Indication: GENERAL ANAESTHESIA
     Dosage: UNK
     Route: 042
     Dates: start: 20151020, end: 20151020
  4. LYRICA [Suspect]
     Active Substance: PREGABALIN
     Indication: NEURALGIA
     Dosage: 300 MG, 1X/DAY
     Route: 048
     Dates: start: 20110101, end: 20151022
  5. ACUPAN [Suspect]
     Active Substance: NEFOPAM HYDROCHLORIDE
     Indication: PERIOPERATIVE ANALGESIA
     Dosage: UNK
     Route: 042
     Dates: start: 20151020, end: 20151020
  6. PROFENID [Suspect]
     Active Substance: KETOPROFEN
     Indication: PERIOPERATIVE ANALGESIA
     Dosage: UNK
     Route: 042
     Dates: start: 20151020, end: 20151020
  7. NEURONTIN [Suspect]
     Active Substance: GABAPENTIN
     Indication: PERIOPERATIVE ANALGESIA
     Dosage: UNK
     Route: 048
     Dates: start: 20151020, end: 20151020
  8. KETAMINE [Suspect]
     Active Substance: KETAMINE
     Indication: GENERAL ANAESTHESIA
     Dosage: UNK
     Route: 042
     Dates: start: 20151020, end: 20151020
  9. CEFAZOLIN [Suspect]
     Active Substance: CEFAZOLIN
     Dosage: UNK
     Route: 042
     Dates: start: 20151020, end: 20151020
  10. MORPHINE SULFATE. [Suspect]
     Active Substance: MORPHINE SULFATE
     Indication: PERIOPERATIVE ANALGESIA
     Dosage: UNK
     Route: 042
     Dates: start: 20151020, end: 20151020
  11. PERFALGAN [Suspect]
     Active Substance: ACETAMINOPHEN
     Indication: PERIOPERATIVE ANALGESIA
     Dosage: UNK
     Route: 042
     Dates: start: 20151020, end: 20151020
  12. TRACRIUM [Suspect]
     Active Substance: ATRACURIUM BESYLATE
     Indication: GENERAL ANAESTHESIA
     Dosage: UNK
     Route: 042
     Dates: start: 20151020, end: 20151020

REACTIONS (1)
  - Pancreatitis acute [Recovering/Resolving]

NARRATIVE: CASE EVENT DATE: 20151022
